FAERS Safety Report 18567265 (Version 2)
Quarter: 2020Q4

REPORT INFORMATION
  Report Type: Spontaneous
  Country: US (occurrence: US)
  Receive Date: 20201201
  Receipt Date: 20201228
  Transmission Date: 20210114
  Serious: Yes (Hospitalization)
  Sender: FDA-Public Use
  Company Number: US-BIOMARINAP-US-2020-133559

PATIENT
  Age: 64 Year
  Sex: Male
  Weight: 80.73 kg

DRUGS (3)
  1. TOPROL XL [Concomitant]
     Active Substance: METOPROLOL SUCCINATE
     Indication: PRODUCT USED FOR UNKNOWN INDICATION
     Dosage: 100 MILLIGRAM, QD
     Route: 048
  2. TOPROL XL [Concomitant]
     Active Substance: METOPROLOL SUCCINATE
     Dosage: 50 MILLIGRAM, QD
     Route: 048
  3. NAGLAZYME [Suspect]
     Active Substance: GALSULFASE
     Indication: MUCOPOLYSACCHARIDOSIS VI
     Dosage: 90 MILLIGRAM, QW
     Route: 042
     Dates: start: 20151013

REACTIONS (8)
  - Wheezing [Unknown]
  - Nasal congestion [Recovered/Resolved with Sequelae]
  - Hypotension [Recovered/Resolved with Sequelae]
  - Body temperature decreased [Recovered/Resolved with Sequelae]
  - Urine abnormality [Recovered/Resolved with Sequelae]
  - Hallucination [Recovered/Resolved with Sequelae]
  - Somnolence [Unknown]
  - Device related bacteraemia [Recovered/Resolved with Sequelae]

NARRATIVE: CASE EVENT DATE: 20201119
